FAERS Safety Report 11491681 (Version 1)
Quarter: 2015Q3

REPORT INFORMATION
  Report Type: Spontaneous
  Country: ZA (occurrence: ZA)
  Receive Date: 20150910
  Receipt Date: 20150910
  Transmission Date: 20151125
  Serious: Yes (Hospitalization)
  Sender: FDA-Public Use
  Company Number: ZA-ABBVIE-13X-143-1099683-00

PATIENT
  Age: 25 Year
  Sex: Female

DRUGS (1)
  1. CREON [Suspect]
     Active Substance: PANCRELIPASE AMYLASE\PANCRELIPASE LIPASE\PANCRELIPASE PROTEASE
     Indication: CYSTIC FIBROSIS
     Route: 048

REACTIONS (3)
  - Lung transplant [Recovered/Resolved]
  - Incorrect product storage [Recovered/Resolved]
  - Product physical issue [Recovered/Resolved]

NARRATIVE: CASE EVENT DATE: 20130305
